FAERS Safety Report 6461039-8 (Version None)
Quarter: 2009Q4

REPORT INFORMATION
  Report Type: 
  Country: None (occurrence: None)
  Receive Date: 20091130
  Receipt Date: 20091120
  Transmission Date: 20100525
  Serious: Yes (Other)
  Sender: FDA-Public Use
  Company Number: B0595094B

PATIENT
  Sex: Female
  Weight: 66.5 kg

DRUGS (3)
  1. LAPATINIB [Suspect]
     Indication: BREAST CANCER
     Dosage: 1250MG PER DAY
     Route: 048
     Dates: start: 20090709
  2. PACLITAXEL [Suspect]
     Indication: BREAST CANCER
     Dosage: 306MG EVERY 3 WEEKS
     Route: 042
     Dates: start: 20090709
  3. MYOCET [Suspect]
     Indication: BREAST CANCER
     Dosage: 105MG EVERY 3 WEEKS
     Route: 042
     Dates: start: 20090709

REACTIONS (1)
  - NEUTROPENIA [None]
